FAERS Safety Report 4698535-X (Version None)
Quarter: 2005Q2

REPORT INFORMATION
  Report Type: 
  Country: None (occurrence: None)
  Receive Date: 20050622
  Receipt Date: 20050610
  Transmission Date: 20051028
  Serious: Yes (Other)
  Sender: FDA-Public Use
  Company Number: 2005087902

PATIENT
  Age: 63 Year
  Sex: Female
  Weight: 51.9369 kg

DRUGS (2)
  1. DIFLUCAN [Suspect]
     Indication: FUNGAL INFECTION
     Dosage: 150 MG (150 MG QD ORAL
     Route: 048
     Dates: end: 20040801
  2. ESTROGEN NOS [Concomitant]

REACTIONS (6)
  - ANXIETY [None]
  - ASTHENIA [None]
  - CHEST DISCOMFORT [None]
  - INSOMNIA [None]
  - LETHARGY [None]
  - PALPITATIONS [None]
